FAERS Safety Report 10191747 (Version 1)
Quarter: 2014Q2

REPORT INFORMATION
  Report Type: Spontaneous
  Country: US (occurrence: None)
  Receive Date: 20140522
  Receipt Date: 20140522
  Transmission Date: 20141212
  Serious: Yes (Hospitalization)
  Sender: FDA-Public Use
  Company Number: None

PATIENT
  Age: 47 Year
  Sex: Female

DRUGS (3)
  1. ENBREL 25 MG / 0.5 ML SRYINGE IMMUNEX CORP [Suspect]
     Dosage: SUB Q
     Route: 058
     Dates: start: 20120809
  2. METHOTREXATE [Concomitant]
  3. OXYCONTIN [Concomitant]

REACTIONS (2)
  - Gastrointestinal haemorrhage [None]
  - Drug dose omission [None]
